FAERS Safety Report 17078245 (Version 1)
Quarter: 2019Q4

REPORT INFORMATION
  Report Type: Report from Study
  Country: US (occurrence: US)
  Receive Date: 20191126
  Receipt Date: 20191126
  Transmission Date: 20200122
  Serious: Yes (Hospitalization)
  Sender: FDA-Public Use
  Company Number: US-GILEAD-2019-0439376

PATIENT
  Age: 77 Year
  Sex: Male

DRUGS (11)
  1. FOLIC ACID. [Concomitant]
     Active Substance: FOLIC ACID
  2. VALSARTAN. [Concomitant]
     Active Substance: VALSARTAN
  3. BIMATOPROST. [Concomitant]
     Active Substance: BIMATOPROST
  4. HCTZ [Concomitant]
     Active Substance: HYDROCHLOROTHIAZIDE
  5. TYLENOL 8HR [Concomitant]
     Active Substance: ACETAMINOPHEN
  6. FISH OIL [Concomitant]
     Active Substance: FISH OIL
  7. ASPIRIN (E.C.) [Concomitant]
     Active Substance: ASPIRIN
  8. AZELASTINE. [Concomitant]
     Active Substance: AZELASTINE HYDROCHLORIDE
  9. BACTRIM [Concomitant]
     Active Substance: SULFAMETHOXAZOLE\TRIMETHOPRIM
  10. IDELALISIB [Suspect]
     Active Substance: IDELALISIB
     Indication: NON-HODGKIN^S LYMPHOMA
     Dosage: 150 MG, BID
     Route: 048
     Dates: start: 20190926
  11. ACYCLOVIR ABBOTT VIAL [Concomitant]

REACTIONS (2)
  - Neck mass [Unknown]
  - Facial pain [Unknown]

NARRATIVE: CASE EVENT DATE: 20191103
